FAERS Safety Report 8956556 (Version 1)
Quarter: 2012Q4

REPORT INFORMATION
  Report Type: 
  Country: US (occurrence: US)
  Receive Date: 20121210
  Receipt Date: 20121210
  Transmission Date: 20130627
  Serious: No
  Sender: FDA-Public Use
  Company Number: US-PFIZER INC-2012310039

PATIENT
  Age: 51 Year
  Sex: Female
  Weight: 81.63 kg

DRUGS (5)
  1. LYRICA [Suspect]
     Indication: NEUROPATHY
     Dosage: 200 mg, daily in morning
     Route: 048
     Dates: start: 200912, end: 201211
  2. PAXIL [Concomitant]
     Indication: DEPRESSION
     Dosage: UNK
  3. NEXIUM [Concomitant]
     Indication: GASTROOESOPHAGEAL REFLUX DISEASE
     Dosage: UNK
  4. SINGULAIR [Concomitant]
     Indication: ALLERGY
     Dosage: UNK
  5. TRAZODONE [Concomitant]
     Indication: SLEEP PROBLEM
     Dosage: UNK, as needed

REACTIONS (2)
  - Pain [Not Recovered/Not Resolved]
  - Muscle spasms [Not Recovered/Not Resolved]
